FAERS Safety Report 23652584 (Version 1)
Quarter: 2024Q1

REPORT INFORMATION
  Report Type: Spontaneous
  Country: US (occurrence: None)
  Receive Date: 20240320
  Receipt Date: 20240320
  Transmission Date: 20240410
  Serious: No
  Sender: FDA-Public Use
  Company Number: 2024A062557

PATIENT
  Age: 825 Month
  Sex: Female

DRUGS (1)
  1. TRUQAP [Suspect]
     Active Substance: CAPIVASERTIB
     Dosage: FOR 4 DAYS THEN 3 DAYS OFF EACH WEEK AND REPEAT AGAIN.
     Route: 048
     Dates: start: 202402

REACTIONS (3)
  - Nervousness [Unknown]
  - Product use issue [Not Recovered/Not Resolved]
  - Product colour issue [Not Recovered/Not Resolved]

NARRATIVE: CASE EVENT DATE: 20240201
